FAERS Safety Report 19470086 (Version 1)
Quarter: 2021Q2

REPORT INFORMATION
  Report Type: Spontaneous
  Country: AU (occurrence: AU)
  Receive Date: 20210629
  Receipt Date: 20210629
  Transmission Date: 20210717
  Serious: Yes (Other)
  Sender: FDA-Public Use
  Company Number: AU-NOVOPROD-817758

PATIENT
  Age: 82 Year
  Sex: Male

DRUGS (4)
  1. SAXENDA [Suspect]
     Active Substance: LIRAGLUTIDE
     Dosage: 1.2 MG
     Route: 065
     Dates: end: 20210518
  2. SAXENDA [Suspect]
     Active Substance: LIRAGLUTIDE
     Indication: PRODUCT USED FOR UNKNOWN INDICATION
     Dosage: 0.6  MG
     Route: 065
     Dates: start: 20210510
  3. FORXIGA [Concomitant]
     Active Substance: DAPAGLIFLOZIN
     Indication: PRODUCT USED FOR UNKNOWN INDICATION
     Dosage: 10 MG, QD
     Route: 065
  4. METFORMIN [Concomitant]
     Active Substance: METFORMIN HYDROCHLORIDE
     Indication: PRODUCT USED FOR UNKNOWN INDICATION
     Dosage: 2 G, QD
     Route: 065

REACTIONS (9)
  - Urinary tract infection [Unknown]
  - Diarrhoea [Recovered/Resolved]
  - Renal failure [Recovering/Resolving]
  - Back pain [Unknown]
  - Abdominal pain [Unknown]
  - Blood pressure decreased [Unknown]
  - Dehydration [Unknown]
  - Urinary retention [Unknown]
  - Gastrointestinal disorder [Recovered/Resolved]
